FAERS Safety Report 8927965 (Version 1)
Quarter: 2012Q4

REPORT INFORMATION
  Report Type: Spontaneous
  Country: US (occurrence: None)
  Receive Date: 20121121
  Receipt Date: 20121121
  Transmission Date: 20130627
  Serious: Yes (Other)
  Sender: FDA-Public Use
  Company Number: None

PATIENT
  Age: 58 Year
  Sex: Female
  Weight: 43.09 kg

DRUGS (2)
  1. MORPHINE 5 ML TATE [Suspect]
     Indication: INTERVERTEBRAL DISC DISPLACEMENT
     Dates: start: 201101, end: 201208
  2. MORPHINE 5 ML TATE [Suspect]
     Indication: NERVE DAMAGE
     Dates: start: 201101, end: 201208

REACTIONS (4)
  - Somnambulism [None]
  - Incorrect dose administered [None]
  - Product substitution issue [None]
  - Product colour issue [None]
